FAERS Safety Report 8976092 (Version 2)
Quarter: 2013Q1

REPORT INFORMATION
  Report Type: Spontaneous
  Country: US (occurrence: US)
  Receive Date: 20121220
  Receipt Date: 20130114
  Transmission Date: 20140127
  Serious: Yes (Death, Hospitalization, Other)
  Sender: FDA-Public Use
  Company Number: US-AMGEN-USASP2012081419

PATIENT
  Age: 66 Year
  Sex: Female
  Weight: 51.7 kg

DRUGS (38)
  1. PROLIA [Suspect]
     Indication: OSTEOPOROSIS POSTMENOPAUSAL
     Dosage: UNK
     Dates: end: 20120506
  2. ARANESP [Concomitant]
     Dosage: 0.104 ML, QWK
  3. SENSIPAR [Concomitant]
     Dosage: 30 MG, MON-WED-FRI
  4. VENOFER [Concomitant]
     Dosage: 20 MG/ML, UNK
  5. CLONIDINE HCL [Concomitant]
     Dosage: 0.1 UNK, TID
  6. COREG [Concomitant]
     Dosage: 12.5 MG, BID
  7. HYDRALAZINE [Concomitant]
     Dosage: 12.5 MG, BID
  8. LISINOPRIL [Concomitant]
     Dosage: 30 MG, QD
  9. ZOCOR [Concomitant]
     Dosage: 80 MG, QD
  10. GABAPENTIN [Concomitant]
     Dosage: 600 MG, TID
  11. ADVAIR [Concomitant]
     Dosage: 1 PUFF, Q12H
     Route: 055
  12. ALBUTEROL SULFATE [Concomitant]
     Dosage: 2 PUFFS, Q4H
     Route: 055
  13. LIDODERM [Concomitant]
     Dosage: 5 %, QD
  14. OXYCODONE / ACETAMINOPHEN [Concomitant]
     Dosage: 5325 MG, EVERY 4-6 HRS
  15. TRAZODONE HCL [Concomitant]
     Dosage: 50 MG, QD
  16. FLEXERIL                           /00428402/ [Concomitant]
     Dosage: 5 MG, TID
  17. ASPIRIN [Concomitant]
     Dosage: 81 MG, QD
  18. OXYGEN [Concomitant]
     Dosage: 4 L, UNK
  19. DEXILANT [Concomitant]
     Dosage: 60 MG, QD
     Route: 048
  20. SIMVASTATIN [Concomitant]
     Dosage: 8 MG, QD
     Route: 048
  21. BACTROBAN                          /00753901/ [Concomitant]
     Dosage: 2 %, TID
  22. PLAVIX [Concomitant]
     Dosage: 75 MG, QD
     Route: 048
  23. VENTOLIN                           /00139501/ [Concomitant]
     Dosage: 2 PUFFS QID
     Route: 055
  24. LANTUS [Concomitant]
     Dosage: 15 UNIT, QD
  25. CIPRO                              /00697201/ [Concomitant]
     Dosage: 500 MG, Q12H
  26. ZYVOX [Concomitant]
     Dosage: 600 MG, BID
  27. NOVOLOG [Concomitant]
     Dosage: 100 UNIT/ ML
  28. ALPRAZOLAM [Concomitant]
     Dosage: 0.25 MG, BID
  29. VENLAFAXINE                        /01233802/ [Concomitant]
     Dosage: 150 MG, QD
  30. OXYCODONE HCL [Concomitant]
     Dosage: 5 MG, Q6H
  31. SPS [Concomitant]
     Dosage: 6O OUNCES , QD
  32. METOCLOPRAMIDE [Concomitant]
     Dosage: 5 MG, QID
  33. ATORVASTATIN CALCIUM [Concomitant]
     Dosage: 40 MG, QD
  34. NITROGLYCERIN [Concomitant]
     Dosage: 0.4 MG, PRN
  35. DILANTIN                           /00017401/ [Concomitant]
  36. KAYEXALATE [Concomitant]
     Dosage: 30 G, UNK
  37. VITAMIN B COMPLEX [Concomitant]
  38. DILTIAZEM HCL [Concomitant]
     Dosage: 120 MG, QD

REACTIONS (16)
  - Death [Fatal]
  - Gastrointestinal haemorrhage [Unknown]
  - Bacterial sepsis [Unknown]
  - Cerebrovascular accident [Unknown]
  - Coronary artery disease [Unknown]
  - Diabetic vascular disorder [Unknown]
  - Osteoarthritis [Unknown]
  - Dyspnoea at rest [Unknown]
  - Balance disorder [Unknown]
  - Appetite disorder [Unknown]
  - Mental status changes [Unknown]
  - Amnesia [Unknown]
  - Fatigue [Unknown]
  - Arthralgia [Unknown]
  - Asthenia [Unknown]
  - Anaemia [Unknown]
